FAERS Safety Report 19767939 (Version 4)
Quarter: 2022Q2

REPORT INFORMATION
  Report Type: Report from Study
  Country: JP (occurrence: JP)
  Receive Date: 20210830
  Receipt Date: 20220406
  Transmission Date: 20220721
  Serious: Yes (Other)
  Sender: FDA-Public Use
  Company Number: JP-KYOWAKIRIN-2021AKK014281

PATIENT

DRUGS (24)
  1. MOGAMULIZUMAB [Suspect]
     Active Substance: MOGAMULIZUMAB
     Indication: Adult T-cell lymphoma/leukaemia
     Dosage: 1 MG/KG
     Route: 041
     Dates: start: 20161216, end: 20161216
  2. DEXCHLORPHENIRAMINE MALEATE [Concomitant]
     Active Substance: DEXCHLORPHENIRAMINE MALEATE
     Indication: Prophylaxis
     Dosage: UNK
     Route: 048
     Dates: start: 20161216, end: 20161216
  3. DEXAMETHASONE SODIUM PHOSPHATE [Concomitant]
     Active Substance: DEXAMETHASONE SODIUM PHOSPHATE
     Indication: Prophylaxis
     Dosage: 6.6 MG
     Route: 065
     Dates: start: 20161216, end: 20161216
  4. ISCOTIN [Concomitant]
     Active Substance: ISONIAZID
     Indication: Infection prophylaxis
     Dosage: UNK
     Route: 048
     Dates: start: 20161129
  5. ITRACONAZOLE [Concomitant]
     Active Substance: ITRACONAZOLE
     Indication: Infection prophylaxis
     Dosage: UNK
     Route: 048
     Dates: start: 20161210
  6. SULFAMETHOXAZOLE\TRIMETHOPRIM [Concomitant]
     Active Substance: SULFAMETHOXAZOLE\TRIMETHOPRIM
     Indication: Infection prophylaxis
     Dosage: UNK
     Route: 048
     Dates: start: 20161129
  7. LOXOPROFEN SODIUM [Concomitant]
     Active Substance: LOXOPROFEN SODIUM
     Indication: Infusion related reaction
     Dosage: UNK
     Route: 048
     Dates: start: 20161229, end: 20170112
  8. MAGNESIUM OXIDE [Concomitant]
     Active Substance: MAGNESIUM OXIDE
     Dosage: UNK
     Route: 048
  9. XYZAL [Concomitant]
     Active Substance: LEVOCETIRIZINE DIHYDROCHLORIDE
     Dosage: UNK
     Route: 048
  10. MIYA-BM [Concomitant]
     Active Substance: CLOSTRIDIUM BUTYRICUM SPORES STRAIN M-55
     Indication: Prophylaxis
     Dosage: UNK
     Route: 048
     Dates: start: 20161217
  11. UBIDECARENONE [Concomitant]
     Active Substance: UBIDECARENONE
     Indication: Prophylaxis
     Dosage: UNK
     Route: 048
     Dates: start: 20161217
  12. RABEPRAZOLE SODIUM [Concomitant]
     Active Substance: RABEPRAZOLE SODIUM
     Indication: Prophylaxis
     Dosage: UNK
     Route: 048
  13. PREDONINE [Concomitant]
     Active Substance: PREDNISOLONE
     Indication: Prophylaxis
     Dosage: UNK
     Route: 048
  14. AMITIZA [Concomitant]
     Active Substance: LUBIPROSTONE
     Indication: Constipation
     Dosage: UNK
     Route: 048
     Dates: start: 20161229
  15. AMITIZA [Concomitant]
     Active Substance: LUBIPROSTONE
     Indication: Prophylaxis
  16. ETIZOLAM [Concomitant]
     Active Substance: ETIZOLAM
     Indication: Insomnia
     Dosage: UNK
     Route: 048
     Dates: start: 20161227
  17. CEFDINIR [Concomitant]
     Active Substance: CEFDINIR
     Indication: Infection prophylaxis
     Dosage: UNK
     Route: 048
     Dates: start: 20161227, end: 20161229
  18. SENNOSIDES A AND B [Concomitant]
     Active Substance: SENNOSIDES A AND B
     Indication: Constipation
     Dosage: UNK
     Route: 048
     Dates: start: 20161226
  19. SENNOSIDES A AND B [Concomitant]
     Active Substance: SENNOSIDES A AND B
     Indication: Prophylaxis
  20. BEPOTASTINE BESYLATE [Concomitant]
     Active Substance: BEPOTASTINE BESYLATE
     Indication: Rash
     Dosage: UNK
     Route: 048
     Dates: start: 20170105, end: 20170111
  21. BEPOTASTINE BESYLATE [Concomitant]
     Active Substance: BEPOTASTINE BESYLATE
     Indication: Eczema herpeticum
  22. VALACYCLOVIR HYDROCHLORIDE [Concomitant]
     Active Substance: VALACYCLOVIR HYDROCHLORIDE
     Indication: Eczema herpeticum
     Dosage: UNK
     Route: 048
     Dates: start: 20161222, end: 20161226
  23. FEBUXOSTAT [Concomitant]
     Active Substance: FEBUXOSTAT
     Indication: Prophylaxis
     Dosage: UNK
     Route: 048
     Dates: start: 20161217
  24. SODIUM PICOSULFATE [Concomitant]
     Active Substance: SODIUM PICOSULFATE
     Indication: Abdominal distension
     Dosage: UNK
     Route: 048
     Dates: start: 20161229, end: 20161229

REACTIONS (8)
  - Eczema herpeticum [Recovered/Resolved]
  - Abdominal distension [Recovered/Resolved]
  - Infusion related reaction [Recovered/Resolved]
  - Vomiting [Recovered/Resolved]
  - Nausea [Recovered/Resolved]
  - Rash [Recovered/Resolved]
  - Constipation [Recovered/Resolved]
  - Insomnia [Not Recovered/Not Resolved]

NARRATIVE: CASE EVENT DATE: 20161219
